FAERS Safety Report 22397642 (Version 3)
Quarter: 2024Q4

REPORT INFORMATION
  Report Type: Report from Study
  Country: BR (occurrence: BR)
  Receive Date: 20230602
  Receipt Date: 20241205
  Transmission Date: 20250114
  Serious: Yes (Other)
  Sender: CELLTRION
  Company Number: BR-CELLTRION INC.-2023BR011196

PATIENT

DRUGS (1)
  1. INFLIXIMAB-DYYB [Suspect]
     Active Substance: INFLIXIMAB-DYYB
     Indication: Crohn^s disease
     Dosage: UNK
     Route: 042
     Dates: start: 20230227

REACTIONS (8)
  - Asthmatic crisis [Unknown]
  - Crohn^s disease [Unknown]
  - Influenza [Unknown]
  - Emphysema [Unknown]
  - Arthritis [Unknown]
  - Osteoarthritis [Unknown]
  - Depression [Unknown]
  - Intentional dose omission [Unknown]

NARRATIVE: CASE EVENT DATE: 20230527
